FAERS Safety Report 23422377 (Version 1)
Quarter: 2024Q1

REPORT INFORMATION
  Report Type: Spontaneous
  Country: US (occurrence: None)
  Receive Date: 20240118
  Receipt Date: 20240118
  Transmission Date: 20240409
  Serious: Yes (Life-Threatening)
  Sender: FDA-Public Use
  Company Number: None

PATIENT
  Age: 38 Year
  Sex: Male
  Weight: 130.5 kg

DRUGS (13)
  1. MOUNJARO [Suspect]
     Active Substance: TIRZEPATIDE
     Indication: Glycosylated haemoglobin increased
     Dosage: FREQUENCY : WEEKLY;?OTHER ROUTE : INJECTED INTO STOMACH AREA;?
     Route: 050
     Dates: start: 20230807, end: 20231122
  2. CPAP Lisinopril [Concomitant]
  3. 20/25 Hydrocortothiazide [Concomitant]
  4. PROPRANOLOL [Concomitant]
     Active Substance: PROPRANOLOL HYDROCHLORIDE
  5. MOUNJARO [Concomitant]
     Active Substance: TIRZEPATIDE
  6. VYVANSE [Concomitant]
     Active Substance: LISDEXAMFETAMINE DIMESYLATE
  7. ADDERALL [Concomitant]
     Active Substance: AMPHETAMINE ASPARTATE\AMPHETAMINE SULFATE\DEXTROAMPHETAMINE SACCHARATE\DEXTROAMPHETAMINE SULFATE
  8. HERBALS\TURMERIC [Concomitant]
     Active Substance: HERBALS\TURMERIC
  9. MAGNESIUM [Concomitant]
     Active Substance: MAGNESIUM
  10. VITAMIN D [Concomitant]
     Active Substance: VITAMIN D NOS
  11. VITAMINS [Concomitant]
     Active Substance: VITAMINS
  12. NAC [Concomitant]
  13. Healing gut Support supplement [Concomitant]

REACTIONS (2)
  - Suicidal ideation [None]
  - Insurance issue [None]

NARRATIVE: CASE EVENT DATE: 20231221
